FAERS Safety Report 6419149-7 (Version None)
Quarter: 2009Q4

REPORT INFORMATION
  Report Type: 
  Country: None (occurrence: None)
  Receive Date: 20091029
  Receipt Date: 20091020
  Transmission Date: 20100525
  Serious: Yes (Hospitalization)
  Sender: FDA-Public Use
  Company Number: DE-ROCHE-663830

PATIENT
  Sex: Male
  Weight: 80 kg

DRUGS (2)
  1. CAPECITABINE [Suspect]
     Dosage: FREQUENCY: DAY 1-14; LAST DOSE PRIOR TO SAE: 19 OCT 2009
     Route: 048
     Dates: start: 20090720
  2. OXALIPLATIN [Suspect]
     Dosage: LAST DOSE PRIOR TO SAE: 19 OCT 2009. DAY 1-22
     Route: 042
     Dates: start: 20090720

REACTIONS (1)
  - GROIN PAIN [None]
